FAERS Safety Report 18669280 (Version 11)
Quarter: 2021Q3

REPORT INFORMATION
  Report Type: Report from Study
  Country: CH (occurrence: CH)
  Receive Date: 20201228
  Receipt Date: 20210924
  Transmission Date: 20211014
  Serious: Yes (Other)
  Sender: FDA-Public Use
  Company Number: CH-BEH-2020125337

PATIENT
  Age: 54 Year
  Sex: Female
  Weight: 105 kg

DRUGS (7)
  1. PULMICORT TURBUHALER [Concomitant]
     Active Substance: BUDESONIDE
     Indication: ALPHA-1 ANTITRYPSIN DEFICIENCY
     Dosage: 2 STROKES
  2. ZEMAIRA [Suspect]
     Active Substance: .ALPHA.1-PROTEINASE INHIBITOR HUMAN
     Indication: ALPHA-1 ANTITRYPSIN DEFICIENCY
     Dosage: 6000 MILLIGRAM, QW
     Route: 042
     Dates: start: 20201112
  3. ZEMAIRA [Suspect]
     Active Substance: .ALPHA.1-PROTEINASE INHIBITOR HUMAN
     Dosage: 6000 MILLIGRAM, QW
     Route: 042
     Dates: end: 20201203
  4. CIPRALEX [Concomitant]
     Active Substance: ESCITALOPRAM OXALATE
     Indication: ALPHA-1 ANTITRYPSIN DEFICIENCY
     Dosage: 20 MILLIGRAM
     Route: 048
  5. SPIRIVA [Concomitant]
     Active Substance: TIOTROPIUM BROMIDE MONOHYDRATE
     Indication: ALPHA-1 ANTITRYPSIN DEFICIENCY
     Dosage: 2 STROKES
  6. CETRIZIN [CETIRIZINE HYDROCHLORIDE] [Concomitant]
     Active Substance: CETIRIZINE HYDROCHLORIDE
     Indication: ALPHA-1 ANTITRYPSIN DEFICIENCY
     Dosage: 10 MILLIGRAM, PRN
     Route: 048
  7. ZEMAIRA [Suspect]
     Active Substance: .ALPHA.1-PROTEINASE INHIBITOR HUMAN
     Dosage: UNK
     Route: 065
     Dates: start: 20210119, end: 20210119

REACTIONS (11)
  - Blood pressure decreased [Unknown]
  - Blood pressure decreased [Not Recovered/Not Resolved]
  - Rash [Unknown]
  - Heart rate decreased [Recovered/Resolved]
  - Blood pressure decreased [Unknown]
  - Urticaria [Recovered/Resolved]
  - Viral infection [Unknown]
  - Heart rate decreased [Recovered/Resolved]
  - Fatigue [Unknown]
  - Headache [Recovered/Resolved]
  - Bradycardia [Unknown]

NARRATIVE: CASE EVENT DATE: 20201115
